FAERS Safety Report 13822127 (Version 1)
Quarter: 2017Q3

REPORT INFORMATION
  Report Type: Spontaneous
  Country: ZA (occurrence: ZA)
  Receive Date: 20170801
  Receipt Date: 20170801
  Transmission Date: 20171127
  Serious: Yes (Other)
  Sender: FDA-Public Use
  Company Number: ZA-PFIZER INC-2017333687

PATIENT
  Age: 49 Year
  Sex: Female

DRUGS (5)
  1. EUTHYROX [Concomitant]
     Active Substance: LEVOTHYROXINE SODIUM
     Indication: THYROID DISORDER
     Dosage: 50 UG, UNK
     Route: 048
  2. STILPANE /01152401/ [Concomitant]
     Active Substance: ACETAMINOPHEN\CAFFEINE\CODEINE PHOSPHATE\MEPROBAMATE
     Indication: PAIN
     Dosage: UNK
     Route: 048
  3. TREPILINE /00002201/ [Concomitant]
     Active Substance: AMITRIPTYLINE
     Indication: STRESS
     Dosage: 10 MG, UNK
     Route: 048
  4. XEFO [Concomitant]
     Active Substance: LORNOXICAM
     Dosage: 8 MG, UNK
     Route: 048
  5. LYRICA [Suspect]
     Active Substance: PREGABALIN
     Indication: PAIN
     Dosage: 25 MG, UNK
     Route: 048
     Dates: end: 201706

REACTIONS (2)
  - Kidney infection [Recovered/Resolved]
  - Cystitis [Recovered/Resolved]
